FAERS Safety Report 20703490 (Version 4)
Quarter: 2022Q2

REPORT INFORMATION
  Report Type: Report from Study
  Country: US (occurrence: US)
  Receive Date: 20220413
  Receipt Date: 20220513
  Transmission Date: 20220721
  Serious: Yes (Hospitalization, Other)
  Sender: FDA-Public Use
  Company Number: US-ABBVIE-22K-163-4317953-00

PATIENT
  Age: 6 Month
  Sex: Male
  Weight: 6.5 kg

DRUGS (4)
  1. SYNAGIS [Suspect]
     Active Substance: PALIVIZUMAB
     Indication: Antiviral prophylaxis
     Route: 030
     Dates: start: 20220214, end: 20220214
  2. SYNAGIS [Suspect]
     Active Substance: PALIVIZUMAB
     Indication: Antiviral prophylaxis
     Route: 030
     Dates: start: 20220222, end: 20220222
  3. QUATTROVAC [Suspect]
     Active Substance: DIPHTHERIA AND TETANUS TOXOIDS AND ACELLULAR PERTUSSIS VACCINE ADSORBED\POLIOVIRUS VACCINE, INACTIVA
     Indication: Prophylaxis
     Dosage: DIPHTHERIA VACCINE TOXOID
     Route: 058
     Dates: start: 20220214, end: 20220214
  4. FREEZE DRIED GLUTAMATE BCG VACCINE (JAPAN) [Suspect]
     Active Substance: BACILLUS CALMETTE-GUERIN SUBSTRAIN TOKYO 172-1 LIVE ANTIGEN
     Indication: Antibiotic prophylaxis
     Route: 058
     Dates: start: 20220214, end: 20220214

REACTIONS (9)
  - Seizure [Recovering/Resolving]
  - Clonic convulsion [Recovered/Resolved]
  - Joint ankylosis [Recovered/Resolved]
  - Oral disorder [Recovered/Resolved]
  - Vision blurred [Recovered/Resolved]
  - Vomiting [Recovered/Resolved]
  - Cyanosis [Recovered/Resolved]
  - Vision blurred [Recovered/Resolved]
  - Vomiting [Not Recovered/Not Resolved]

NARRATIVE: CASE EVENT DATE: 20220222
